FAERS Safety Report 9258121 (Version 1)
Quarter: 2013Q2

REPORT INFORMATION
  Report Type: Spontaneous
  Country: US (occurrence: US)
  Receive Date: 20130426
  Receipt Date: 20130426
  Transmission Date: 20140414
  Serious: Yes (Hospitalization)
  Sender: FDA-Public Use
  Company Number: US-AMGEN-USASP2013028340

PATIENT
  Age: 54 Year
  Sex: Female

DRUGS (8)
  1. PROLIA [Suspect]
     Indication: OSTEOPOROSIS
     Dosage: UNK
     Dates: start: 20130301
  2. ASPIRIN [Concomitant]
  3. PRILOSEC                           /00661201/ [Concomitant]
  4. ZANAFLEX [Concomitant]
  5. NEURONTIN [Concomitant]
  6. LISINOPRIL [Concomitant]
  7. XANAX [Concomitant]
  8. BOTOX [Concomitant]

REACTIONS (2)
  - Chest pain [Recovered/Resolved]
  - Arthralgia [Unknown]
